FAERS Safety Report 10211491 (Version 2)
Quarter: 2014Q3

REPORT INFORMATION
  Report Type: Spontaneous
  Country: FR (occurrence: None)
  Receive Date: 20140528
  Receipt Date: 20140703
  Transmission Date: 20150326
  Serious: Yes (Hospitalization)
  Sender: FDA-Public Use
  Company Number: 7291839

PATIENT
  Age: 51 Year
  Sex: Female

DRUGS (6)
  1. TAMOXIFEN [Suspect]
     Active Substance: TAMOXIFEN
     Indication: PRODUCT USED FOR UNKNOWN INDICATION
  2. LEVOTHYROX (LEVOTHYROXINE SODIUM) [Suspect]
     Active Substance: LEVOTHYROXINE SODIUM
     Indication: PRODUCT USED FOR UNKNOWN INDICATION
     Dosage: 75 MCG ON EVEN DAYS AND 50 MCG ON ODD DAYS (1 DF,1 IN 1 D)
     Route: 048
  3. EXTENCILLINE [Suspect]
     Active Substance: PENICILLIN G BENZATHINE
     Indication: ERYSIPELAS
     Dates: end: 201402
  4. AVLOCARDYL [Suspect]
     Active Substance: PROPRANOLOL HYDROCHLORIDE
     Indication: MIGRAINE
     Dosage: 1 DF (1 DF,1 IN 1 D)
     Route: 048
     Dates: start: 201401
  5. PYOSTACINE [Suspect]
     Active Substance: PRISTINAMYCIN
     Indication: ERYSIPELAS
     Route: 048
     Dates: end: 20140115
  6. PARIET [Suspect]
     Active Substance: RABEPRAZOLE SODIUM
     Indication: PRODUCT USED FOR UNKNOWN INDICATION
     Route: 048
     Dates: end: 201401

REACTIONS (15)
  - Nausea [None]
  - Haemorrhage [None]
  - Inflammation [None]
  - Chills [None]
  - Lymphocele [None]
  - Procedural pain [None]
  - Abdominal pain upper [None]
  - Pain [None]
  - Erysipelas [None]
  - Radiation skin injury [None]
  - Disease recurrence [None]
  - Lymphoedema [None]
  - Pyrexia [None]
  - Mastectomy [None]
  - Burning sensation [None]

NARRATIVE: CASE EVENT DATE: 2014
